FAERS Safety Report 5456173-5 (Version None)
Quarter: 2007Q3

REPORT INFORMATION
  Report Type: 
  Country: None (occurrence: None)
  Receive Date: 20070918
  Receipt Date: 20070330
  Transmission Date: 20080115
  Serious: Yes (Other)
  Sender: FDA-Public Use
  Company Number: US-ASTRAZENECA-2006UW23363

PATIENT
  Sex: Male

DRUGS (1)
  1. SEROQUEL [Suspect]
     Route: 048

REACTIONS (4)
  - DIABETIC COMA [None]
  - KETOACIDOSIS [None]
  - PANCREATITIS RELAPSING [None]
  - TYPE 2 DIABETES MELLITUS [None]
